FAERS Safety Report 5383332-2 (Version None)
Quarter: 2007Q3

REPORT INFORMATION
  Report Type: 
  Country: None (occurrence: None)
  Receive Date: 20070710
  Receipt Date: 20070628
  Transmission Date: 20080115
  Serious: Yes (Hospitalization, Other)
  Sender: FDA-Public Use
  Company Number: DE-PFIZER INC-2007054173

PATIENT
  Age: 60 Year
  Sex: Female

DRUGS (2)
  1. CHAMPIX [Suspect]
     Indication: SMOKING CESSATION THERAPY
     Route: 048
     Dates: start: 20070402, end: 20070406
  2. ALL OTHER THERAPEUTIC PRODUCTS [Concomitant]

REACTIONS (8)
  - BRAIN DAMAGE [None]
  - COORDINATION ABNORMAL [None]
  - DISORIENTATION [None]
  - DIZZINESS [None]
  - NAUSEA [None]
  - SPEECH DISORDER [None]
  - VIRAL INFECTION [None]
  - VOMITING [None]
